FAERS Safety Report 22049982 (Version 1)
Quarter: 2023Q1

REPORT INFORMATION
  Report Type: Spontaneous
  Country: US (occurrence: US)
  Receive Date: 20230301
  Receipt Date: 20230301
  Transmission Date: 20230418
  Serious: No
  Sender: FDA-Public Use
  Company Number: US-SA-SAC20230224001246

PATIENT
  Sex: Male

DRUGS (1)
  1. DUPIXENT [Suspect]
     Active Substance: DUPILUMAB
     Dosage: UNK, FREQUENCY: OTHER
     Route: 058

REACTIONS (7)
  - Injection site pain [Unknown]
  - Lack of injection site rotation [Unknown]
  - Eczema [Unknown]
  - Skin irritation [Unknown]
  - Rash [Unknown]
  - Insomnia [Unknown]
  - Disturbance in attention [Unknown]
